FAERS Safety Report 21617873 (Version 1)
Quarter: 2022Q4

REPORT INFORMATION
  Report Type: Report from Study
  Country: DE (occurrence: DE)
  Receive Date: 20221119
  Receipt Date: 20221119
  Transmission Date: 20230112
  Serious: Yes (Life-Threatening, Hospitalization, Other)
  Sender: FDA-Public Use
  Company Number: DE-MYLANLABS-2022M1087515

PATIENT
  Sex: Female

DRUGS (14)
  1. METHOTREXATE [Suspect]
     Active Substance: METHOTREXATE
     Indication: Rheumatoid arthritis
     Dosage: UNIT DOSE: 5 MG ,ROUTE OF ADMINISTRATION : UNKNOWN ,THERAPY END DATE :ASKU
     Route: 065
     Dates: start: 20161221
  2. METHOTREXATE [Suspect]
     Active Substance: METHOTREXATE
     Dosage: UNIT DOSE: 5 MG ,ROUTE OF ADMINISTRATION : UNKNOWN ,THERAPY END DATE :ASKU
     Route: 065
     Dates: start: 20160602
  3. METHOTREXATE [Suspect]
     Active Substance: METHOTREXATE
     Dosage: UNIT DOSE: 5 MG ,ROUTE OF ADMINISTRATION : UNKNOWN ,THERAPY END DATE :ASKU
     Route: 065
     Dates: start: 20160926
  4. METHOTREXATE [Suspect]
     Active Substance: METHOTREXATE
     Dosage: UNIT DOSE: 5 MG ,ROUTE OF ADMINISTRATION : UNKNOWN ,THERAPY END DATE :ASKU
     Route: 065
     Dates: start: 20200525
  5. METHOTREXATE [Suspect]
     Active Substance: METHOTREXATE
     Dosage: UNIT DOSE: 5 MG ,ROUTE OF ADMINISTRATION : UNKNOWN ,THERAPY END DATE :ASKU
     Route: 065
     Dates: start: 20200214
  6. METHOTREXATE [Suspect]
     Active Substance: METHOTREXATE
     Dosage: UNIT DOSE: 5 MG ,ROUTE OF ADMINISTRATION : UNKNOWN ,THERAPY END DATE :ASKU
     Route: 065
     Dates: start: 20190510
  7. METHOTREXATE [Suspect]
     Active Substance: METHOTREXATE
     Dosage: UNIT DOSE: 5 MG ,ROUTE OF ADMINISTRATION : UNKNOWN ,THERAPY END DATE :ASKU .
     Route: 065
     Dates: start: 20170725
  8. METHOTREXATE [Suspect]
     Active Substance: METHOTREXATE
     Dosage: UNIT DOSE: 5 MG ,ROUTE OF ADMINISTRATION : UNKNOWN ,THERAPY END DATE :ASKU
     Route: 065
     Dates: start: 20190111
  9. METHOTREXATE [Suspect]
     Active Substance: METHOTREXATE
     Dosage: UNIT DOSE: 5 MG ,ROUTE OF ADMINISTRATION : UNKNOWN ,THERAPY END DATE :ASKU
     Route: 065
     Dates: start: 20180201
  10. METHOTREXATE [Suspect]
     Active Substance: METHOTREXATE
     Dosage: UNIT DOSE: 5 MG ,ROUTE OF ADMINISTRATION : UNKNOWN ,THERAPY END DATE :ASKU
     Route: 065
     Dates: start: 20180628
  11. METHOTREXATE [Suspect]
     Active Substance: METHOTREXATE
     Dosage: UNIT DOSE: 5 MG ,ROUTE OF ADMINISTRATION : UNKNOWN ,THERAPY END DATE :ASKU
     Route: 065
     Dates: start: 20201229
  12. MABTHERA [Suspect]
     Active Substance: RITUXIMAB
     Indication: Rheumatoid arthritis
     Dosage: UNIT DOSE: 500 MG ,ROUTE OF ADMINISTRATION : UNKNOWN ,THERAPY END DATE :ASKU
     Route: 065
     Dates: start: 201701
  13. MABTHERA [Suspect]
     Active Substance: RITUXIMAB
     Dosage: UNIT DOSE: 1000 MG ,ROUTE OF ADMINISTRATION : UNKNOWN ,THERAPY END DATE :ASKU
     Route: 065
     Dates: start: 201606
  14. ORENCIA [Suspect]
     Active Substance: ABATACEPT
     Indication: Rheumatoid arthritis
     Dosage: UNK,ROUTE OF ADMINISTRATION : UNKNOWN .,DURATION :1 MONTHS
     Route: 065
     Dates: start: 202010, end: 202011

REACTIONS (16)
  - Anaphylactic reaction [Recovered/Resolved]
  - Depression [Not Recovered/Not Resolved]
  - Rheumatoid arthritis [Recovered/Resolved]
  - Rheumatoid arthritis [Recovered/Resolved]
  - Lower respiratory tract infection [Unknown]
  - Gastroenteritis [Unknown]
  - Hypersensitivity [Unknown]
  - Conjunctivitis [Unknown]
  - Nodule [Not Recovered/Not Resolved]
  - Influenza like illness [Recovered/Resolved]
  - Cough [Not Recovered/Not Resolved]
  - Gastrointestinal infection [Unknown]
  - Pain in extremity [Not Recovered/Not Resolved]
  - Fall [Not Recovered/Not Resolved]
  - Influenza like illness [Unknown]
  - Urticaria [Not Recovered/Not Resolved]

NARRATIVE: CASE EVENT DATE: 20171215
